FAERS Safety Report 6209030-0 (Version None)
Quarter: 2009Q2

REPORT INFORMATION
  Report Type: 
  Country: None (occurrence: None)
  Receive Date: 20090529
  Receipt Date: 20090527
  Transmission Date: 20091009
  Serious: Yes (Other)
  Sender: FDA-Public Use
  Company Number: PHHY2009MX19972

PATIENT
  Sex: Male

DRUGS (1)
  1. ZELMAC [Suspect]
     Indication: IRRITABLE BOWEL SYNDROME
     Dosage: 6 MG, UNK
     Route: 048
     Dates: start: 20090514

REACTIONS (4)
  - ABDOMINAL PAIN [None]
  - FLATULENCE [None]
  - HEPATIC PAIN [None]
  - PERITONEAL LAVAGE [None]
